FAERS Safety Report 5104906-X (Version None)
Quarter: 2006Q3

REPORT INFORMATION
  Report Type: 
  Country: None (occurrence: None)
  Receive Date: 20060914
  Receipt Date: 20060905
  Transmission Date: 20061208
  Serious: Yes (Other)
  Sender: FDA-Public Use
  Company Number: CA-ROCHE-462294

PATIENT
  Age: 44 Year
  Sex: Female

DRUGS (2)
  1. XENICAL [Suspect]
     Indication: WEIGHT CONTROL
     Route: 048
     Dates: start: 20060101, end: 20060315
  2. 1 CONCOMITANT DRUG [Concomitant]
     Dosage: DRUG NAME REPORTED AS HYPERTENSION MEDICATION.
     Route: 048
     Dates: end: 20060615

REACTIONS (1)
  - CHOLECYSTITIS ACUTE [None]
